FAERS Safety Report 17260709 (Version 1)
Quarter: 2020Q1

REPORT INFORMATION
  Report Type: Report from Study
  Country: US (occurrence: US)
  Receive Date: 20200113
  Receipt Date: 20200113
  Transmission Date: 20200409
  Serious: Yes (Other)
  Sender: FDA-Public Use
  Company Number: US-EMD SERONO-9139026

PATIENT
  Sex: Female

DRUGS (1)
  1. REBIF [Suspect]
     Active Substance: INTERFERON BETA-1A
     Indication: PRODUCT USED FOR UNKNOWN INDICATION
     Route: 058
     Dates: start: 20190531

REACTIONS (9)
  - Autoimmune disorder [Unknown]
  - Spondylitis [Unknown]
  - Influenza like illness [Recovering/Resolving]
  - Insomnia [Recovering/Resolving]
  - Hypoaesthesia [Recovering/Resolving]
  - Paraesthesia [Recovering/Resolving]
  - Joint effusion [Unknown]
  - Tremor [Recovering/Resolving]
  - Malaise [Unknown]
